FAERS Safety Report 20649958 (Version 1)
Quarter: 2022Q1

REPORT INFORMATION
  Report Type: Spontaneous
  Country: US (occurrence: None)
  Receive Date: 20220329
  Receipt Date: 20220329
  Transmission Date: 20220423
  Serious: Yes (Death, Hospitalization)
  Sender: FDA-Public Use
  Company Number: None

PATIENT
  Age: 82 Year
  Sex: Male

DRUGS (11)
  1. AMBRISENTAN [Suspect]
     Active Substance: AMBRISENTAN
     Indication: Pulmonary hypertension
     Dosage: FREQUENCY : DAILY;?
     Route: 048
     Dates: start: 20220105, end: 20220311
  2. TADALAFIL [Concomitant]
  3. LASIX [Concomitant]
     Active Substance: FUROSEMIDE
  4. ASPIRIN [Concomitant]
     Active Substance: ASPIRIN
  5. simivastatin [Concomitant]
  6. METFORMIN [Concomitant]
     Active Substance: METFORMIN HYDROCHLORIDE
  7. ACARBOSE [Concomitant]
     Active Substance: ACARBOSE
  8. SPIRIVA RESPIMAT [Concomitant]
  9. OMEPRAZOLE [Concomitant]
     Active Substance: OMEPRAZOLE
  10. probiotic [Concomitant]
  11. centrum silver MVI [Concomitant]

REACTIONS (4)
  - Cardiac failure [None]
  - Acute myocardial infarction [None]
  - Respiratory failure [None]
  - Palliative care [None]

NARRATIVE: CASE EVENT DATE: 20220227
